FAERS Safety Report 16874710 (Version 1)
Quarter: 2019Q4

REPORT INFORMATION
  Report Type: Spontaneous
  Country: US (occurrence: US)
  Receive Date: 20191001
  Receipt Date: 20191001
  Transmission Date: 20200122
  Serious: No
  Sender: FDA-Public Use
  Company Number: US-GALDERMA-US19024957

PATIENT
  Sex: Female

DRUGS (1)
  1. MIRVASO [Suspect]
     Active Substance: BRIMONIDINE TARTRATE
     Indication: ROSACEA
     Dosage: 0.33% PUMP
     Route: 061
     Dates: start: 20190401, end: 20190412

REACTIONS (1)
  - Depression [Not Recovered/Not Resolved]

NARRATIVE: CASE EVENT DATE: 20190408
